FAERS Safety Report 10054898 (Version 16)
Quarter: 2016Q3

REPORT INFORMATION
  Report Type: Spontaneous
  Country: US (occurrence: US)
  Receive Date: 20140402
  Receipt Date: 20160815
  Transmission Date: 20161108
  Serious: Yes (Hospitalization, Disabling, Other)
  Sender: FDA-Public Use
  Company Number: US-GE HEALTHCARE MEDICAL DIAGNOSTICS-OSCN-PR-1403S-0068

PATIENT
  Age: 56 Year
  Sex: Female
  Weight: 88.53 kg

DRUGS (6)
  1. OMNISCAN [Suspect]
     Active Substance: GADODIAMIDE
     Indication: DIAGNOSTIC PROCEDURE
  2. VITAMINS [Concomitant]
     Active Substance: VITAMINS
     Dates: start: 200511
  3. ASPIRIN. [Concomitant]
     Active Substance: ASPIRIN
     Dates: start: 200511
  4. EPOGEN [Concomitant]
     Active Substance: ERYTHROPOIETIN
  5. OMNISCAN [Suspect]
     Active Substance: GADODIAMIDE
     Indication: PRODUCT USED FOR UNKNOWN INDICATION
     Dosage: DOSE NOT REPORTED
     Route: 042
     Dates: start: 20060316, end: 20060316
  6. IRON [Concomitant]
     Active Substance: IRON

REACTIONS (6)
  - Fractured sacrum [Unknown]
  - Hip fracture [Unknown]
  - Heart rate irregular [Unknown]
  - Nephrogenic systemic fibrosis [Not Recovered/Not Resolved]
  - Fall [Recovered/Resolved]
  - Pelvic fracture [Unknown]

NARRATIVE: CASE EVENT DATE: 201004
